FAERS Safety Report 15820879 (Version 1)
Quarter: 2019Q1

REPORT INFORMATION
  Report Type: Spontaneous
  Country: US (occurrence: US)
  Receive Date: 20190114
  Receipt Date: 20190114
  Transmission Date: 20190417
  Serious: Yes (Death, Other)
  Sender: FDA-Public Use
  Company Number: US-SA-2019SA009102

PATIENT
  Age: 2 Year
  Sex: Male

DRUGS (3)
  1. METHADONE HYDROCHLORIDE. [Suspect]
     Active Substance: METHADONE HYDROCHLORIDE
  2. CHLORPHENIRAMINE HYDROCHLORIDE. [Suspect]
     Active Substance: CHLORPHENIRAMINE HYDROCHLORIDE
  3. DIPHENHYDRAMINE. [Suspect]
     Active Substance: DIPHENHYDRAMINE

REACTIONS (8)
  - Cardiac arrest [Unknown]
  - Unresponsive to stimuli [Unknown]
  - Hypotension [Unknown]
  - Encephalopathy [Fatal]
  - Pupil fixed [Unknown]
  - Brain herniation [Fatal]
  - Mydriasis [Unknown]
  - Brain oedema [Fatal]
